FAERS Safety Report 10315297 (Version 2)
Quarter: 2014Q3

REPORT INFORMATION
  Report Type: Other
  Country: US (occurrence: US)
  Receive Date: 20140719
  Receipt Date: 20140719
  Transmission Date: 20150326
  Serious: No
  Sender: FDA-Public Use
  Company Number: US-GSKPPD-2014GSK003954

PATIENT
  Sex: Male
  Weight: 92.16 kg

DRUGS (5)
  1. LASIX [Concomitant]
     Active Substance: FUROSEMIDE
     Route: 048
  2. AVANDIA [Suspect]
     Active Substance: ROSIGLITAZONE MALEATE
     Indication: DIABETES MELLITUS
     Route: 048
  3. COZAAR [Concomitant]
     Active Substance: LOSARTAN POTASSIUM
     Route: 048
  4. TOPROL XL [Concomitant]
     Active Substance: METOPROLOL SUCCINATE
     Route: 048
  5. ISOSORBIDE [Concomitant]
     Active Substance: ISOSORBIDE
     Route: 048

REACTIONS (1)
  - Cardiac failure congestive [Not Recovered/Not Resolved]
